FAERS Safety Report 25871566 (Version 1)
Quarter: 2025Q4

REPORT INFORMATION
  Report Type: Spontaneous
  Country: US (occurrence: US)
  Receive Date: 20251001
  Receipt Date: 20251001
  Transmission Date: 20260118
  Serious: No
  Sender: GALPHARM INTERNATIONAL
  Company Number: US-PERRIGO-25US006077

PATIENT
  Age: 4 Year

DRUGS (1)
  1. LORATADINE [Suspect]
     Active Substance: LORATADINE
     Indication: Wrong product administered
     Dosage: 5 MG, SINGLE
     Route: 048
     Dates: start: 20250508, end: 20250508

REACTIONS (3)
  - Product name confusion [Recovered/Resolved]
  - Wrong product administered [Recovered/Resolved]
  - Wrong technique in product usage process [Recovered/Resolved]

NARRATIVE: CASE EVENT DATE: 20250508
